FAERS Safety Report 11870662 (Version 1)
Quarter: 2015Q4

REPORT INFORMATION
  Report Type: Spontaneous
  Country: US (occurrence: None)
  Receive Date: 20151224
  Receipt Date: 20151224
  Transmission Date: 20160305
  Serious: No
  Sender: FDA-Public Use
  Company Number: None

PATIENT
  Age: 68 Year
  Sex: Male

DRUGS (10)
  1. POTASSIUM CHLORIDE. [Concomitant]
     Active Substance: POTASSIUM CHLORIDE
  2. CARVEDILOL. [Concomitant]
     Active Substance: CARVEDILOL
  3. INSUL GLARGINE [Concomitant]
  4. ASPIRIN. [Concomitant]
     Active Substance: ASPIRIN
  5. METOPROLOL TARTRATE. [Concomitant]
     Active Substance: METOPROLOL TARTRATE
  6. HEPARIN [Suspect]
     Active Substance: HEPARIN SODIUM
     Indication: ACUTE MYOCARDIAL INFARCTION
     Dosage: 1300 UNITS/HR, CONTINOUS, IV
     Route: 042
     Dates: start: 20150903, end: 20150903
  7. AMIODARONE [Concomitant]
     Active Substance: AMIODARONE
  8. INSULIN ASPART [Concomitant]
     Active Substance: INSULIN ASPART
  9. LANSOPRAZOLE. [Concomitant]
     Active Substance: LANSOPRAZOLE
  10. TIMOLOL OPTHALMIC [Concomitant]

REACTIONS (2)
  - Haematochezia [None]
  - Hypotension [None]

NARRATIVE: CASE EVENT DATE: 20150902
